FAERS Safety Report 17670460 (Version 1)
Quarter: 2020Q2

REPORT INFORMATION
  Report Type: Report from Study
  Country: ES (occurrence: ES)
  Receive Date: 20200415
  Receipt Date: 20200415
  Transmission Date: 20200713
  Serious: Yes (Life-Threatening, Hospitalization)
  Sender: FDA-Public Use
  Company Number: ES-TEVA-2020-ES-1223383

PATIENT
  Age: 75 Year
  Sex: Female

DRUGS (6)
  1. PARACETAMOL (12A) [Concomitant]
     Active Substance: ACETAMINOPHEN
     Indication: ARTHRALGIA
     Dosage: 3 GRAM
     Route: 048
     Dates: start: 20090803
  2. LACTITOL MONOHIDRATO (2454MH) [Concomitant]
     Indication: HEPATIC CIRRHOSIS
     Dosage: 10 GRAM
     Route: 048
     Dates: start: 20161229
  3. TRAMADOL HIDROCLORURO (2389CH) [Suspect]
     Active Substance: TRAMADOL
     Indication: ARTHRALGIA
     Dosage: 200 MG
     Route: 048
     Dates: start: 2013, end: 20171225
  4. CLEXANE 4.000 UI (40 MG)/ 0,4 ML  SOLUCION INYECTABLE EN JERINGA PRECA [Interacting]
     Active Substance: ENOXAPARIN SODIUM
     Indication: THROMBOSIS PROPHYLAXIS
     Dosage: 40 MG; FORM STRENGTH : 4,000 IU (40 MG) / 0.4 ML
     Route: 058
     Dates: start: 20171221, end: 20171225
  5. IBUPROFENO (1769A) [Concomitant]
     Active Substance: IBUPROFEN
     Indication: ARTHRALGIA
     Dosage: 1.8 GRAM
     Route: 048
     Dates: start: 20171221, end: 20171225
  6. ALOPURINOL (318A) [Concomitant]
     Active Substance: ALLOPURINOL
     Indication: GOUT
     Dosage: 100 MG
     Route: 048
     Dates: start: 20091207, end: 20171225

REACTIONS (2)
  - Upper gastrointestinal haemorrhage [Recovered/Resolved]
  - Drug interaction [Unknown]

NARRATIVE: CASE EVENT DATE: 20171223
